FAERS Safety Report 10830315 (Version 2)
Quarter: 2015Q2

REPORT INFORMATION
  Report Type: Spontaneous
  Country: US (occurrence: US)
  Receive Date: 20150219
  Receipt Date: 20150407
  Transmission Date: 20150821
  Serious: No
  Sender: FDA-Public Use
  Company Number: US-TEVA-541633USA

PATIENT
  Age: 63 Year
  Sex: Female
  Weight: 86.71 kg

DRUGS (14)
  1. OMEPRAZOLE. [Concomitant]
     Active Substance: OMEPRAZOLE
  2. VITAMIN D [Concomitant]
     Active Substance: CHOLECALCIFEROL
  3. ROXICODONE [Concomitant]
     Active Substance: OXYCODONE HYDROCHLORIDE
  4. REGLAN [Concomitant]
     Active Substance: METOCLOPRAMIDE HYDROCHLORIDE
  5. SIMVASTATIN. [Concomitant]
     Active Substance: SIMVASTATIN
  6. LASIX [Concomitant]
     Active Substance: FUROSEMIDE
  7. VITAMIN B12 [Concomitant]
     Active Substance: CYANOCOBALAMIN
  8. FENTORA [Suspect]
     Active Substance: FENTANYL CITRATE
     Indication: PAIN
     Route: 065
     Dates: start: 20141209, end: 20141209
  9. ZOFRAN [Concomitant]
     Active Substance: ONDANSETRON HYDROCHLORIDE
  10. AMITIZA [Concomitant]
     Active Substance: LUBIPROSTONE
  11. SPIRIVA [Concomitant]
     Active Substance: TIOTROPIUM BROMIDE MONOHYDRATE
  12. FIORICET [Concomitant]
     Active Substance: ACETAMINOPHEN\BUTALBITAL\CAFFEINE
  13. XANAX [Concomitant]
     Active Substance: ALPRAZOLAM
  14. SOMA [Concomitant]
     Active Substance: CARISOPRODOL

REACTIONS (3)
  - Product use issue [Unknown]
  - Nausea [Recovered/Resolved]
  - Vomiting [Recovered/Resolved]

NARRATIVE: CASE EVENT DATE: 20141209
